FAERS Safety Report 6553995-4 (Version None)
Quarter: 2010Q1

REPORT INFORMATION
  Report Type: 
  Country: None (occurrence: None)
  Receive Date: 20100127
  Receipt Date: 20100125
  Transmission Date: 20100710
  Serious: Yes (Hospitalization)
  Sender: FDA-Public Use
  Company Number: JP-EISAI INC.-E2020-05797-SPO-JP

PATIENT
  Age: 86 Year
  Sex: Female
  Weight: 38 kg

DRUGS (5)
  1. ARICEPT [Suspect]
     Indication: DEMENTIA ALZHEIMER'S TYPE
     Route: 048
     Dates: start: 20091127, end: 20091209
  2. ARICEPT [Suspect]
     Route: 048
     Dates: start: 20091210, end: 20091215
  3. ESTRIEL [Concomitant]
     Indication: OSTEOPOROSIS
     Route: 048
     Dates: start: 20080725
  4. CALFINA [Concomitant]
     Indication: OSTEOPOROSIS
     Route: 048
     Dates: start: 20080822, end: 20091215
  5. STAYBLA (IMIDAFENACIN) [Concomitant]
     Route: 048
     Dates: start: 20091214

REACTIONS (1)
  - RHABDOMYOLYSIS [None]
